FAERS Safety Report 25955463 (Version 1)
Quarter: 2025Q4

REPORT INFORMATION
  Report Type: Spontaneous
  Country: EU (occurrence: EU)
  Receive Date: 20251024
  Receipt Date: 20251024
  Transmission Date: 20260117
  Serious: Yes (Other)
  Sender: ABBVIE
  Company Number: EU-ABBVIE-6517545

PATIENT
  Sex: Female

DRUGS (3)
  1. VENCLEXTA [Suspect]
     Active Substance: VENETOCLAX
     Indication: Chronic lymphocytic leukaemia
     Dosage: DOSE REDUCED
     Route: 048
  2. VENCLEXTA [Suspect]
     Active Substance: VENETOCLAX
     Indication: Chronic lymphocytic leukaemia
     Route: 048
  3. OBINUTUZUMAB [Suspect]
     Active Substance: OBINUTUZUMAB
     Indication: Chronic lymphocytic leukaemia
     Route: 065

REACTIONS (10)
  - Hepatotoxicity [Unknown]
  - Anaemia [Unknown]
  - Blood phosphorus increased [Unknown]
  - Cytokine release syndrome [Unknown]
  - Haematotoxicity [Unknown]
  - Infection [Unknown]
  - Infusion related reaction [Unknown]
  - Neutropenia [Unknown]
  - Tumour lysis syndrome [Unknown]
  - Gastrointestinal disorder [Unknown]
